FAERS Safety Report 8113548-3 (Version None)
Quarter: 2012Q1

REPORT INFORMATION
  Report Type: 
  Country: None (occurrence: None)
  Receive Date: 20120203
  Receipt Date: 20120127
  Transmission Date: 20120608
  Serious: Yes (Congenital Anomaly, Other)
  Sender: FDA-Public Use
  Company Number: PHHY2012ES008160

PATIENT
  Sex: Female

DRUGS (1)
  1. METHIMAZOLE [Suspect]
     Dosage: MATERNAL DOSE : 10 MG PER DAY
     Route: 064

REACTIONS (6)
  - FOETAL EXPOSURE DURING PREGNANCY [None]
  - APLASIA CUTIS CONGENITA [None]
  - CONGENITAL NAIL DISORDER [None]
  - CONGENITAL FOOT MALFORMATION [None]
  - MATERNAL DRUGS AFFECTING FOETUS [None]
  - BONE DEFORMITY [None]
